FAERS Safety Report 20223297 (Version 2)
Quarter: 2021Q4

REPORT INFORMATION
  Report Type: Spontaneous
  Country: US (occurrence: US)
  Receive Date: 20211223
  Receipt Date: 20211228
  Transmission Date: 20220303
  Serious: No
  Sender: FDA-Public Use
  Company Number: US-BIOGEN-2021BI01078760

PATIENT
  Sex: Female

DRUGS (1)
  1. TECFIDERA [Suspect]
     Active Substance: DIMETHYL FUMARATE
     Indication: Multiple sclerosis
     Route: 065
     Dates: start: 202103

REACTIONS (5)
  - Insomnia [Not Recovered/Not Resolved]
  - Upper limb fracture [Unknown]
  - Wrist fracture [Unknown]
  - Memory impairment [Unknown]
  - Fall [Recovered/Resolved]

NARRATIVE: CASE EVENT DATE: 20210101
